FAERS Safety Report 9263956 (Version 3)
Quarter: 2013Q2

REPORT INFORMATION
  Report Type: Spontaneous
  Country: FR (occurrence: FR)
  Receive Date: 20130430
  Receipt Date: 20130528
  Transmission Date: 20140414
  Serious: Yes (Life-Threatening, Hospitalization)
  Sender: FDA-Public Use
  Company Number: FR-GLAXOSMITHKLINE-B0885984A

PATIENT
  Age: 65 Year
  Sex: Male

DRUGS (8)
  1. ARIXTRA [Suspect]
     Indication: DEEP VEIN THROMBOSIS
     Dosage: 7.5MG PER DAY
     Route: 058
     Dates: start: 20130301, end: 20130329
  2. PROPRANOLOL [Concomitant]
  3. ALPRAZOLAM [Concomitant]
  4. PARIET [Concomitant]
  5. CALCIUM [Concomitant]
  6. MAGNESIUM [Concomitant]
  7. SPIRIVA [Concomitant]
  8. NEOMERCAZOLE [Concomitant]

REACTIONS (8)
  - Anaemia [Recovered/Resolved]
  - Retroperitoneal haematoma [Recovered/Resolved]
  - Renal failure acute [Recovered/Resolved]
  - Malaise [Recovered/Resolved]
  - Fall [Unknown]
  - Abdominal pain [Recovered/Resolved]
  - Pallor [Recovered/Resolved]
  - Incorrect drug administration duration [Unknown]
